FAERS Safety Report 17874871 (Version 1)
Quarter: 2020Q2

REPORT INFORMATION
  Report Type: Report from Study
  Country: None (occurrence: US)
  Receive Date: 20200609
  Receipt Date: 20200609
  Transmission Date: 20200714
  Serious: Yes (Other)
  Sender: FDA-Public Use
  Company Number: US-ABBVIE-20K-163-3435470-00

PATIENT
  Sex: Female

DRUGS (1)
  1. CREON [Suspect]
     Active Substance: PANCRELIPASE AMYLASE\PANCRELIPASE LIPASE\PANCRELIPASE PROTEASE
     Indication: PRODUCT USED FOR UNKNOWN INDICATION
     Route: 048

REACTIONS (7)
  - Malabsorption [Unknown]
  - Vitamin D deficiency [Unknown]
  - Breast cancer stage II [Unknown]
  - Depression [Unknown]
  - Fibromyalgia [Unknown]
  - Anaemia [Unknown]
  - Pancreatic atrophy [Unknown]
